FAERS Safety Report 6960123-X (Version None)
Quarter: 2010Q3

REPORT INFORMATION
  Report Type: 
  Country: None (occurrence: None)
  Receive Date: 20100901
  Receipt Date: 20100820
  Transmission Date: 20110219
  Serious: Yes (Hospitalization, Disabling)
  Sender: FDA-Public Use
  Company Number: PHHY2010CN54895

PATIENT
  Age: 40 Year
  Sex: Male

DRUGS (1)
  1. ZOLEDRONIC [Suspect]
     Indication: ANKYLOSING SPONDYLITIS
     Dosage: 5 MG ONCE A YEAR
     Route: 042
     Dates: start: 20100813

REACTIONS (6)
  - BACK PAIN [None]
  - CHEST PAIN [None]
  - CONDITION AGGRAVATED [None]
  - MOVEMENT DISORDER [None]
  - MUSCLE SPASMS [None]
  - MUSCULOSKELETAL CHEST PAIN [None]
